FAERS Safety Report 7336458-8 (Version None)
Quarter: 2011Q1

REPORT INFORMATION
  Report Type: 
  Country: None (occurrence: None)
  Receive Date: 20110307
  Receipt Date: 20110222
  Transmission Date: 20110831
  Serious: Yes (Life-Threatening, Hospitalization)
  Sender: FDA-Public Use
  Company Number: TR-MYLANLABS-2011S1003783

PATIENT
  Age: 46 Year
  Sex: Male

DRUGS (2)
  1. FLUOROURACIL [Suspect]
     Indication: ADENOCARCINOMA
     Route: 065
  2. FOLINIC ACID [Concomitant]
     Indication: ADENOCARCINOMA
     Route: 065

REACTIONS (3)
  - VENTRICULAR TACHYCARDIA [None]
  - VENTRICULAR FIBRILLATION [None]
  - SYNCOPE [None]
